FAERS Safety Report 4487806-8 (Version None)
Quarter: 2004Q4

REPORT INFORMATION
  Report Type: 
  Country: None (occurrence: None)
  Receive Date: 20041027
  Receipt Date: 20041027
  Transmission Date: 20050328
  Serious: Yes (Life-Threatening, Hospitalization, Disabling)
  Sender: FDA-Public Use
  Company Number: None

PATIENT
  Age: 54 Year
  Sex: Female
  Weight: 58.9676 kg

DRUGS (8)
  1. VIOXX [Suspect]
     Indication: BURSITIS
     Dosage: 25 MG TABLET / ONCE A DAY
     Dates: start: 20000201, end: 20010501
  2. VIOXX [Suspect]
     Indication: FIBROMYALGIA
     Dosage: 25 MG TABLET / ONCE A DAY
     Dates: start: 20000201, end: 20010501
  3. VIOXX [Suspect]
     Indication: BURSITIS
     Dosage: 25 MG TABLET / ONCE A DAY
     Dates: start: 20020201, end: 20041001
  4. VIOXX [Suspect]
     Indication: FIBROMYALGIA
     Dosage: 25 MG TABLET / ONCE A DAY
     Dates: start: 20020201, end: 20041001
  5. VIOXX [Suspect]
     Indication: BURSITIS
     Dosage: 50 MG TABLET / ONCE DAY
     Dates: start: 20010501, end: 20020201
  6. VIOXX [Suspect]
     Indication: FIBROMYALGIA
     Dosage: 50 MG TABLET / ONCE DAY
     Dates: start: 20010501, end: 20020201
  7. SERZONE [Concomitant]
  8. PREMPHASE 14/14 [Concomitant]

REACTIONS (1)
  - RUPTURED CEREBRAL ANEURYSM [None]
